FAERS Safety Report 5951323-6 (Version None)
Quarter: 2008Q4

REPORT INFORMATION
  Report Type: 
  Country: None (occurrence: None)
  Receive Date: 20081113
  Receipt Date: 20081104
  Transmission Date: 20090506
  Serious: Yes (Hospitalization)
  Sender: FDA-Public Use
  Company Number: DE-BIOGENIDEC-2008BI023086

PATIENT
  Age: 37 Year
  Sex: Male
  Weight: 90 kg

DRUGS (5)
  1. TYSABRI [Suspect]
     Indication: RELAPSING-REMITTING MULTIPLE SCLEROSIS
     Route: 042
     Dates: start: 20061201
  2. IBUPROFEN TABLETS [Concomitant]
     Route: 048
  3. TESTOSTERONE [Concomitant]
     Route: 030
  4. CITALOPRAM HYDROBROMIDE [Concomitant]
  5. TRIMIPRAMINE MALEATE [Concomitant]

REACTIONS (2)
  - APPENDICITIS PERFORATED [None]
  - WOUND INFECTION [None]
